FAERS Safety Report 18564226 (Version 2)
Quarter: 2021Q3

REPORT INFORMATION
  Report Type: Spontaneous
  Country: JP (occurrence: JP)
  Receive Date: 20201201
  Receipt Date: 20210826
  Transmission Date: 20211014
  Serious: Yes (Hospitalization)
  Sender: FDA-Public Use
  Company Number: JP-PFIZER INC-2020465941

PATIENT
  Age: 17 Month
  Sex: Female
  Weight: 9.6 kg

DRUGS (2)
  1. ALPRAZOLAM. [Suspect]
     Active Substance: ALPRAZOLAM
     Dosage: 1 DF (ESTIMATED AMOUNT SWALLOWED BY THE INFANT PATIENT WAS ONE ALPRAZOLAM TABLET)
     Route: 048
  2. LOXOPROFEN [Suspect]
     Active Substance: LOXOPROFEN
     Dosage: ONE TABLET (60)
     Route: 048

REACTIONS (6)
  - Abnormal behaviour [Unknown]
  - Dizziness [Unknown]
  - Euphoric mood [Unknown]
  - Skin warm [Unknown]
  - Gait disturbance [Unknown]
  - Accidental exposure to product by child [Unknown]
